FAERS Safety Report 9692581 (Version 1)
Quarter: 2013Q4

REPORT INFORMATION
  Report Type: Spontaneous
  Country: ID (occurrence: ID)
  Receive Date: 20131118
  Receipt Date: 20131118
  Transmission Date: 20140711
  Serious: Yes (Death)
  Sender: FDA-Public Use
  Company Number: ID-JNJFOC-20131104587

PATIENT
  Age: 50 Year
  Sex: Female

DRUGS (2)
  1. RISPERDAL CONSTA [Suspect]
     Indication: SCHIZOPHRENIA
     Route: 030
  2. RISPERIDONE [Concomitant]
     Route: 048

REACTIONS (2)
  - Sudden death [Fatal]
  - Fatigue [Unknown]
